FAERS Safety Report 7428791-6 (Version None)
Quarter: 2011Q2

REPORT INFORMATION
  Report Type: 
  Country: None (occurrence: None)
  Receive Date: 20110421
  Receipt Date: 20110412
  Transmission Date: 20111010
  Serious: Yes (Hospitalization, Other)
  Sender: FDA-Public Use
  Company Number: ML-BRISTOL-MYERS SQUIBB COMPANY-15678477

PATIENT
  Age: 28 Year
  Sex: Female
  Weight: 50 kg

DRUGS (2)
  1. EFAVIRENZ [Suspect]
     Indication: HIV INFECTION
     Route: 048
     Dates: start: 20110303
  2. LAMIVUDINE + ZIDOVUDINE [Suspect]
     Indication: HIV INFECTION
     Dosage: 1DF=2 UNITS NOT SPECIFIED.
     Route: 048
     Dates: start: 20110303

REACTIONS (5)
  - VERTIGO [None]
  - RASH [None]
  - CHILLS [None]
  - VOMITING [None]
  - DECREASED APPETITE [None]
